FAERS Safety Report 17718906 (Version 2)
Quarter: 2020Q2

REPORT INFORMATION
  Report Type: Spontaneous
  Country: US (occurrence: US)
  Receive Date: 20200428
  Receipt Date: 20200505
  Transmission Date: 20200714
  Serious: Yes (Other)
  Sender: FDA-Public Use
  Company Number: US-PFIZER INC-2020168272

PATIENT
  Age: 68 Year
  Sex: Female

DRUGS (6)
  1. PACLITAXEL. [Suspect]
     Active Substance: PACLITAXEL
     Indication: STEM CELL TRANSPLANT
     Dosage: UNK, CYCLIC (TWO TREATMENTS)
  2. CISPLATIN. [Suspect]
     Active Substance: CISPLATIN
     Indication: OVARIAN GERM CELL TUMOUR
  3. PACLITAXEL. [Suspect]
     Active Substance: PACLITAXEL
     Indication: OVARIAN GERM CELL TUMOUR
  4. CISPLATIN. [Suspect]
     Active Substance: CISPLATIN
     Indication: STEM CELL TRANSPLANT
     Dosage: UNK, CYCLIC (TWO TREATMENTS)
  5. IFOSFAMIDE. [Suspect]
     Active Substance: IFOSFAMIDE
     Indication: OVARIAN GERM CELL TUMOUR
  6. IFOSFAMIDE. [Suspect]
     Active Substance: IFOSFAMIDE
     Indication: STEM CELL TRANSPLANT
     Dosage: UNK, CYCLIC (TWO TREATMENTS)

REACTIONS (1)
  - Posterior reversible encephalopathy syndrome [Recovering/Resolving]
